FAERS Safety Report 10213969 (Version 2)
Quarter: 2014Q4

REPORT INFORMATION
  Report Type: Spontaneous
  Country: US (occurrence: US)
  Receive Date: 20140603
  Receipt Date: 20141027
  Transmission Date: 20150528
  Serious: Yes (Death, Hospitalization)
  Sender: FDA-Public Use
  Company Number: US-BAYER-2014-082281

PATIENT
  Age: 30 Year
  Sex: Female
  Weight: 104.31 kg

DRUGS (10)
  1. OCELLA [Suspect]
     Active Substance: DROSPIRENONE\ETHINYL ESTRADIOL
     Indication: MENSTRUAL CYCLE MANAGEMENT
     Dosage: UNK
     Route: 048
     Dates: start: 20100304, end: 20120601
  2. CITALOPRAM [Concomitant]
     Active Substance: CITALOPRAM HYDROBROMIDE
     Dosage: 40 MG, UNK
     Dates: start: 20120310, end: 20120511
  3. ABILIFY [Concomitant]
     Active Substance: ARIPIPRAZOLE
     Dosage: 2 MG, UNK
     Dates: start: 20120426, end: 20120526
  4. NAPROXEN. [Concomitant]
     Active Substance: NAPROXEN
     Indication: PHARYNGITIS
     Dosage: 500 MG, BID, IF NEEDED
     Dates: start: 20120512, end: 20120515
  5. HYDROCODONE [Concomitant]
     Active Substance: HYDROCODONE
     Indication: PHARYNGITIS
     Dosage: UNK
     Dates: start: 20120512, end: 20120515
  6. CELEXA [Concomitant]
     Active Substance: CITALOPRAM HYDROBROMIDE
  7. YASMIN [Suspect]
     Active Substance: DROSPIRENONE\ETHINYL ESTRADIOL
     Indication: MENSTRUAL CYCLE MANAGEMENT
     Dosage: UNK
     Route: 048
     Dates: start: 20060411, end: 20091110
  8. LEVOTHYROXINE [Concomitant]
     Active Substance: LEVOTHYROXINE
     Dosage: 150 ?G, UNK
     Dates: start: 20120328, end: 20120520
  9. FLEXERIL [Concomitant]
     Active Substance: CYCLOBENZAPRINE HYDROCHLORIDE
     Indication: BACK PAIN
  10. VICODIN [Concomitant]
     Active Substance: ACETAMINOPHEN\HYDROCODONE BITARTRATE
     Indication: PAIN

REACTIONS (20)
  - Unresponsive to stimuli [Not Recovered/Not Resolved]
  - Incoherent [Not Recovered/Not Resolved]
  - Blood pressure immeasurable [Not Recovered/Not Resolved]
  - Vena cava injury [Fatal]
  - Dyspnoea [Not Recovered/Not Resolved]
  - Skin discolouration [Not Recovered/Not Resolved]
  - Injury [Fatal]
  - Vomiting [Not Recovered/Not Resolved]
  - General physical health deterioration [Fatal]
  - Loss of consciousness [Not Recovered/Not Resolved]
  - Anxiety [None]
  - Anhedonia [None]
  - Hypoaesthesia oral [Not Recovered/Not Resolved]
  - Emotional distress [None]
  - Back pain [Fatal]
  - Vena cava thrombosis [Fatal]
  - Lip discolouration [Not Recovered/Not Resolved]
  - Hypoaesthesia [Not Recovered/Not Resolved]
  - Pain [None]
  - Product use issue [None]

NARRATIVE: CASE EVENT DATE: 20120601
